FAERS Safety Report 9080101 (Version 1)
Quarter: 2013Q1

REPORT INFORMATION
  Report Type: Report from Study
  Country: US (occurrence: US)
  Receive Date: 20130130
  Receipt Date: 20130130
  Transmission Date: 20140127
  Serious: Yes (Hospitalization, Other)
  Sender: FDA-Public Use
  Company Number: US-ABBOTT-12P-163-0960170-00

PATIENT
  Sex: Male
  Weight: 62.2 kg

DRUGS (2)
  1. HUMIRA 40 MG/ 0.8 ML PRE-FILLED SYRINGE [Suspect]
     Indication: CROHN^S DISEASE
     Dates: start: 200911, end: 201010
  2. HUMIRA 40 MG/ 0.8 ML PRE-FILLED SYRINGE [Suspect]
     Dates: start: 201206

REACTIONS (5)
  - Postoperative abscess [Recovered/Resolved]
  - Colectomy [Recovered/Resolved]
  - Pain [Recovering/Resolving]
  - Drug ineffective [Recovering/Resolving]
  - Weight decreased [Recovered/Resolved]
